FAERS Safety Report 13709196 (Version 1)
Quarter: 2017Q2

REPORT INFORMATION
  Report Type: Spontaneous
  Country: US (occurrence: US)
  Receive Date: 20170630
  Receipt Date: 20170630
  Transmission Date: 20170830
  Serious: Yes (Hospitalization)
  Sender: FDA-Public Use
  Company Number: None

PATIENT
  Age: 3 Year
  Sex: Male

DRUGS (1)
  1. NORDITROPIN [Suspect]
     Active Substance: SOMATROPIN
     Dosage: ?          OTHER DOSE:MG;?
     Route: 058

REACTIONS (3)
  - Drug dose omission [None]
  - Eye disorder [None]
  - Cellulitis [None]

NARRATIVE: CASE EVENT DATE: 20170629
